FAERS Safety Report 5937750-1 (Version None)
Quarter: 2008Q4

REPORT INFORMATION
  Report Type: 
  Country: None (occurrence: None)
  Receive Date: 20081031
  Receipt Date: 20081024
  Transmission Date: 20090506
  Serious: Yes (Other)
  Sender: FDA-Public Use
  Company Number: ES-GENENTECH-270427

PATIENT

DRUGS (3)
  1. AVASTIN [Suspect]
     Indication: COLORECTAL CANCER
     Dosage: 5 MG/KG, 2/WEEK
     Route: 065
  2. CAPECITABINE [Suspect]
     Indication: COLORECTAL CANCER
     Dosage: 600 MG/M2, BID
     Route: 065
  3. OXALIPLATIN [Suspect]
     Indication: COLORECTAL CANCER
     Dosage: 85 MG/M2, 2/WEEK
     Route: 065

REACTIONS (1)
  - HERPES ZOSTER [None]
